FAERS Safety Report 14545782 (Version 1)
Quarter: 2018Q1

REPORT INFORMATION
  Report Type: Spontaneous
  Country: GR (occurrence: GR)
  Receive Date: 20180219
  Receipt Date: 20180219
  Transmission Date: 20180509
  Serious: Yes (Other)
  Sender: FDA-Public Use
  Company Number: GR-ROCHE-2073781

PATIENT
  Age: 50 Year
  Sex: Female

DRUGS (1)
  1. MYCOPHENOLATE MOFETIL. [Suspect]
     Active Substance: MYCOPHENOLATE MOFETIL
     Indication: NEUROPSYCHIATRIC LUPUS
     Route: 065

REACTIONS (4)
  - Vomiting [Unknown]
  - Renal impairment [Unknown]
  - Product use in unapproved indication [Unknown]
  - Drug intolerance [Unknown]
